FAERS Safety Report 5449048-9 (Version None)
Quarter: 2007Q3

REPORT INFORMATION
  Report Type: 
  Country: None (occurrence: None)
  Receive Date: 20070911
  Receipt Date: 20070903
  Transmission Date: 20080115
  Serious: Yes (Death)
  Sender: FDA-Public Use
  Company Number: JP-JNJFOC-20070703507

PATIENT
  Sex: Male

DRUGS (15)
  1. CLADRIBINE [Suspect]
     Dosage: CYCLE 3
     Route: 042
  2. CLADRIBINE [Suspect]
     Dosage: CYCLE 2
     Route: 042
  3. CLADRIBINE [Suspect]
     Indication: MANTLE CELL LYMPHOMA
     Dosage: CYCLE 1
     Route: 042
  4. NOVANTRONE [Suspect]
     Dosage: CYCLE 3
     Route: 041
  5. NOVANTRONE [Suspect]
     Dosage: CYCLE 2
     Route: 041
  6. NOVANTRONE [Suspect]
     Indication: MANTLE CELL LYMPHOMA
     Dosage: CYCLE 1
     Route: 041
  7. BAKTAR [Suspect]
     Indication: PROPHYLAXIS
     Route: 048
  8. RITUXAN [Concomitant]
     Dosage: CYCLE 3
     Route: 041
  9. RITUXAN [Concomitant]
     Dosage: CYCLE 2
     Route: 041
  10. RITUXAN [Concomitant]
     Indication: MANTLE CELL LYMPHOMA
     Dosage: CYCLE 1
     Route: 041
  11. LASIX [Concomitant]
     Route: 048
  12. ISCOTIN [Concomitant]
     Route: 048
  13. PYDOXAL [Concomitant]
     Route: 048
  14. CANDESARTAN CILEXETIL [Concomitant]
     Route: 048
  15. GRAN [Concomitant]
     Route: 058

REACTIONS (6)
  - DISSEMINATED CYTOMEGALOVIRAL INFECTION [None]
  - HYPOALBUMINAEMIA [None]
  - PANCYTOPENIA [None]
  - RENAL IMPAIRMENT [None]
  - RESPIRATORY FAILURE [None]
  - URINE OUTPUT DECREASED [None]
